FAERS Safety Report 15957961 (Version 2)
Quarter: 2019Q2

REPORT INFORMATION
  Report Type: Spontaneous
  Country: US (occurrence: US)
  Receive Date: 20190213
  Receipt Date: 20190509
  Transmission Date: 20190711
  Serious: No
  Sender: FDA-Public Use
  Company Number: US-JNJFOC-20190137059

PATIENT
  Age: 45 Year
  Sex: Male
  Weight: 93.44 kg

DRUGS (1)
  1. XARELTO [Suspect]
     Active Substance: RIVAROXABAN
     Indication: PULMONARY EMBOLISM
     Route: 048
     Dates: start: 201809

REACTIONS (8)
  - Rash [Recovered/Resolved]
  - Chest pain [Recovered/Resolved]
  - Dry skin [Recovered/Resolved]
  - Urine odour abnormal [Recovered/Resolved]
  - Musculoskeletal pain [Recovering/Resolving]
  - Pain in jaw [Recovering/Resolving]
  - Constipation [Recovered/Resolved]
  - Onychoclasis [Recovered/Resolved]

NARRATIVE: CASE EVENT DATE: 201809
